FAERS Safety Report 7005515-8 (Version None)
Quarter: 2010Q3

REPORT INFORMATION
  Report Type: 
  Country: None (occurrence: None)
  Receive Date: 20100902
  Receipt Date: 20100601
  Transmission Date: 20110219
  Serious: Yes (Hospitalization, Disabling, Other)
  Sender: FDA-Public Use
  Company Number: 229309USA

PATIENT
  Sex: Female

DRUGS (1)
  1. METOCLOPRAMIDE [Suspect]
     Indication: IMPAIRED GASTRIC EMPTYING
     Dosage: 10 MG
     Dates: end: 20090501

REACTIONS (14)
  - AKATHISIA [None]
  - DYSKINESIA [None]
  - DYSTONIA [None]
  - EYE MOVEMENT DISORDER [None]
  - HUNGER [None]
  - MASTICATION DISORDER [None]
  - MEMORY IMPAIRMENT [None]
  - MOVEMENT DISORDER [None]
  - MUSCLE SPASMS [None]
  - MUSCLE SPASTICITY [None]
  - STEREOTYPY [None]
  - TARDIVE DYSKINESIA [None]
  - TREMOR [None]
  - WEIGHT DECREASED [None]
